FAERS Safety Report 6987806-X (Version None)
Quarter: 2010Q3

REPORT INFORMATION
  Report Type: 
  Country: None (occurrence: None)
  Receive Date: 20100916
  Receipt Date: 20100903
  Transmission Date: 20110219
  Serious: Yes (Hospitalization, Other)
  Sender: FDA-Public Use
  Company Number: PHHY2010US46842

PATIENT
  Sex: Male
  Weight: 83.9 kg

DRUGS (2)
  1. EXJADE [Suspect]
     Indication: SICKLE CELL ANAEMIA
     Dosage: 1500 MG, QD
     Route: 048
     Dates: end: 20100711
  2. DEXAMETHASONE [Suspect]

REACTIONS (2)
  - BONE MARROW TRANSPLANT [None]
  - PSYCHOTIC DISORDER [None]
